FAERS Safety Report 8958147 (Version 4)
Quarter: 2013Q2

REPORT INFORMATION
  Report Type: Report from Study
  Country: ES (occurrence: ES)
  Receive Date: 20121211
  Receipt Date: 20130620
  Transmission Date: 20140414
  Serious: Yes (Other)
  Sender: FDA-Public Use
  Company Number: ES-AMGEN-ESPCT2012063621

PATIENT
  Age: 73 Year
  Sex: Female

DRUGS (2)
  1. DENOSUMAB [Suspect]
     Indication: NEOPLASM MALIGNANT
     Dosage: 1.7 ML, Q4WK
     Route: 058
     Dates: start: 20111219, end: 20120906
  2. TAXOL [Concomitant]
     Dosage: 115 MG, QWK
     Route: 042
     Dates: start: 20120510, end: 20120920

REACTIONS (2)
  - Periodontal disease [Not Recovered/Not Resolved]
  - Osteonecrosis of jaw [Not Recovered/Not Resolved]
